FAERS Safety Report 26118655 (Version 1)
Quarter: 2025Q4

REPORT INFORMATION
  Report Type: Report from Study
  Country: US (occurrence: US)
  Receive Date: 20251203
  Receipt Date: 20251203
  Transmission Date: 20260118
  Serious: Yes (Other)
  Sender: ALEXION PHARMACEUTICALS
  Company Number: 202510NAM009734US

PATIENT
  Sex: Female

DRUGS (5)
  1. FASENRA [Suspect]
     Active Substance: BENRALIZUMAB
     Indication: Asthma
     Dosage: 30 MILLIGRAM, Q8W
     Dates: start: 202506
  2. FASENRA [Suspect]
     Active Substance: BENRALIZUMAB
  3. HUMIRA [Concomitant]
     Active Substance: ADALIMUMAB
     Route: 065
  4. RUCONEST [Concomitant]
     Active Substance: CONESTAT ALFA
     Route: 065
  5. TAKHZYRO [Concomitant]
     Active Substance: LANADELUMAB-FLYO
     Route: 065

REACTIONS (1)
  - Hereditary angioedema [Unknown]
